FAERS Safety Report 6185880-4 (Version None)
Quarter: 2009Q2

REPORT INFORMATION
  Report Type: 
  Country: None (occurrence: None)
  Receive Date: 20090511
  Receipt Date: 20090507
  Transmission Date: 20091009
  Serious: Yes (Life-Threatening)
  Sender: FDA-Public Use
  Company Number: B0573175A

PATIENT
  Sex: Male

DRUGS (3)
  1. LAMICTAL [Suspect]
     Indication: BIPOLAR I DISORDER
     Route: 048
  2. LENDORMIN [Concomitant]
     Dosage: .25MG PER DAY
     Route: 048
     Dates: start: 20090417
  3. WYPAX [Concomitant]
     Dosage: .5MG PER DAY
     Route: 048
     Dates: start: 20090501

REACTIONS (2)
  - BIPOLAR I DISORDER [None]
  - SUICIDE ATTEMPT [None]
